FAERS Safety Report 7878329-4 (Version None)
Quarter: 2011Q4

REPORT INFORMATION
  Report Type: 
  Country: None (occurrence: None)
  Receive Date: 20111028
  Receipt Date: 20111021
  Transmission Date: 20120403
  Serious: Yes (Death, Hospitalization)
  Sender: FDA-Public Use
  Company Number: 2011SP050071

PATIENT
  Age: 61 Year
  Sex: Female

DRUGS (8)
  1. REMERON [Suspect]
     Indication: BIPOLAR II DISORDER
     Dosage: 45 MG;QD ; 60 MG;QD
     Dates: start: 20100420, end: 20100424
  2. REMERON [Suspect]
     Indication: BIPOLAR II DISORDER
     Dosage: 45 MG;QD ; 60 MG;QD
     Dates: start: 20100401
  3. REMERON [Suspect]
     Indication: BIPOLAR II DISORDER
     Dosage: 45 MG;QD ; 60 MG;QD
     Dates: start: 20100413, end: 20100419
  4. HALCION [Suspect]
     Indication: PRODUCT USED FOR UNKNOWN INDICATION
  5. LITHIUM CARBONATE [Suspect]
     Indication: PRODUCT USED FOR UNKNOWN INDICATION
  6. ZOLPIDEM TARTRATE [Suspect]
     Indication: PRODUCT USED FOR UNKNOWN INDICATION
  7. FLURAZEPAM HCL [Suspect]
     Indication: BIPOLAR II DISORDER
     Dosage: 15 MG;QD
     Dates: start: 20100412, end: 20100424
  8. LAMICTAL [Suspect]
     Indication: BIPOLAR II DISORDER
     Dosage: 25 MG;QD
     Dates: start: 20100413, end: 20100424

REACTIONS (5)
  - ASPHYXIA [None]
  - SUICIDE ATTEMPT [None]
  - MULTIPLE DRUG OVERDOSE INTENTIONAL [None]
  - COMPLETED SUICIDE [None]
  - THERAPY CESSATION [None]
